FAERS Safety Report 7565812-4 (Version None)
Quarter: 2011Q2

REPORT INFORMATION
  Report Type: 
  Country: None (occurrence: None)
  Receive Date: 20110623
  Receipt Date: 20110617
  Transmission Date: 20111010
  Serious: No
  Sender: FDA-Public Use
  Company Number: US-PFIZER INC-2011117636

PATIENT
  Sex: Female
  Weight: 58 kg

DRUGS (2)
  1. PRISTIQ [Suspect]
     Indication: ANXIETY
     Dosage: 50 MG, 1X/DAY
     Route: 048
     Dates: start: 20110524, end: 20110529
  2. SYNTHROID [Concomitant]
     Indication: HYPOTHYROIDISM
     Dosage: UNK

REACTIONS (7)
  - FATIGUE [None]
  - CONSTIPATION [None]
  - TINNITUS [None]
  - INSOMNIA [None]
  - DRY MOUTH [None]
  - ARTHRALGIA [None]
  - PAIN [None]
